FAERS Safety Report 17887461 (Version 2)
Quarter: 2020Q3

REPORT INFORMATION
  Report Type: Spontaneous
  Country: US (occurrence: US)
  Receive Date: 20200612
  Receipt Date: 20200701
  Transmission Date: 20201103
  Serious: Yes (Life-Threatening, Hospitalization, Other)
  Sender: FDA-Public Use
  Company Number: US-LUPIN PHARMACEUTICALS INC.-2020-02776

PATIENT
  Age: 55 Year
  Sex: Male

DRUGS (2)
  1. OXYCODONE HYDROCHLORIDE TABLETS [Suspect]
     Active Substance: OXYCODONE HYDROCHLORIDE
     Indication: BACK PAIN
     Dosage: 24 DOSAGE FORM TOTAL (OVERDOSE)
     Route: 048
  2. OXYGEN. [Concomitant]
     Active Substance: OXYGEN
     Indication: CHRONIC OBSTRUCTIVE PULMONARY DISEASE
     Dosage: UNK
     Route: 065

REACTIONS (8)
  - Myelitis transverse [Recovering/Resolving]
  - Acute respiratory failure [Recovering/Resolving]
  - Shock [Recovering/Resolving]
  - Hypotension [Recovering/Resolving]
  - Myelopathy [Recovering/Resolving]
  - Accidental overdose [Recovered/Resolved]
  - Multiple organ dysfunction syndrome [Recovering/Resolving]
  - Spinal cord ischaemia [Recovering/Resolving]
